FAERS Safety Report 22059010 (Version 4)
Quarter: 2025Q1

REPORT INFORMATION
  Report Type: Spontaneous
  Country: US (occurrence: US)
  Receive Date: 20230303
  Receipt Date: 20250225
  Transmission Date: 20250409
  Serious: Yes (Other)
  Sender: PFIZER
  Company Number: US-PFIZER INC-PV202300040581

PATIENT
  Age: 73 Year
  Sex: Female
  Weight: 55.34 kg

DRUGS (1)
  1. XELJANZ XR [Suspect]
     Active Substance: TOFACITINIB CITRATE
     Indication: Arthritis
     Dosage: 11 MG, 1X/DAY

REACTIONS (8)
  - Sinusitis bacterial [Unknown]
  - Pneumonia [Unknown]
  - Dysphonia [Unknown]
  - Infection [Unknown]
  - Bronchitis [Unknown]
  - Illness [Recovered/Resolved]
  - Expired product administered [Unknown]
  - Dysphonia [Unknown]

NARRATIVE: CASE EVENT DATE: 20230101
